FAERS Safety Report 12531055 (Version 4)
Quarter: 2017Q1

REPORT INFORMATION
  Report Type: Spontaneous
  Country: US (occurrence: US)
  Receive Date: 20160706
  Receipt Date: 20170317
  Transmission Date: 20170428
  Serious: Yes (Hospitalization, Other)
  Sender: FDA-Public Use
  Company Number: US-009507513-1606USA011726

PATIENT
  Age: 60 Year
  Sex: Female
  Weight: 73.47 kg

DRUGS (24)
  1. ZOCOR [Suspect]
     Active Substance: SIMVASTATIN
     Dosage: 20 MG, QD
     Route: 048
     Dates: start: 20160526, end: 20160701
  2. ZESTRIL [Concomitant]
     Active Substance: LISINOPRIL
     Dosage: UNK
     Route: 048
  3. RAPAMUNE [Suspect]
     Active Substance: SIROLIMUS
     Indication: LYMPHANGIOLEIOMYOMATOSIS
     Dosage: 1 PILL ONCE DAILY
     Route: 048
     Dates: start: 201302
  4. RAPAMUNE [Suspect]
     Active Substance: SIROLIMUS
     Dosage: INCREASED TO 1 MG PER DAY
     Route: 048
     Dates: start: 20160705
  5. TIMOLOL MALEATE. [Concomitant]
     Active Substance: TIMOLOL MALEATE
     Indication: GLAUCOMA
     Dosage: 0.5 MG, QD
     Route: 047
     Dates: start: 2011
  6. VITAMINS (UNSPECIFIED) [Concomitant]
     Active Substance: VITAMINS
     Indication: ROUTINE HEALTH MAINTENANCE
     Dosage: FOR YEARS
  7. ZOCOR [Suspect]
     Active Substance: SIMVASTATIN
     Indication: BLOOD CHOLESTEROL INCREASED
     Dosage: 10 MG, QD
     Route: 048
     Dates: start: 201502, end: 201503
  8. RAPAMUNE [Suspect]
     Active Substance: SIROLIMUS
     Dosage: INITIALLY: 0.5 MG, PER DAY
     Route: 048
     Dates: start: 20150105, end: 2015
  9. PRILOSEC [Concomitant]
     Active Substance: OMEPRAZOLE MAGNESIUM
     Indication: GASTROOESOPHAGEAL REFLUX DISEASE
     Dosage: 20 MG, QD, FOR YEARS
     Route: 048
  10. VITAMIN E [Concomitant]
     Active Substance: .ALPHA.-TOCOPHEROL
     Dosage: UNK
     Route: 048
  11. PRINIVIL [Concomitant]
     Active Substance: LISINOPRIL
     Indication: BLOOD PRESSURE INCREASED
     Dosage: 10 MG, QD, FOR YEARS
     Route: 048
  12. PROVENTIL [Concomitant]
     Active Substance: ALBUTEROL
     Indication: WHEEZING
     Dosage: 2 PUFFS INTO THE LUNGS EVERY 6 HOURS AS NEEDED
     Route: 055
  13. VENTOLIN [Concomitant]
     Active Substance: ALBUTEROL SULFATE
     Indication: WHEEZING
     Dosage: 2 PUFFS INTO THE LUNGS EVERY 6 HOURS AS NEEDED
     Route: 055
  14. ZOCOR [Suspect]
     Active Substance: SIMVASTATIN
     Indication: LYMPHANGIOLEIOMYOMATOSIS
     Dosage: 5 MG, QD
     Route: 048
  15. RAPAMUNE [Suspect]
     Active Substance: SIROLIMUS
     Dosage: DECREASED TO 0.5 MG PER DAY
     Route: 048
     Dates: start: 201503, end: 20160705
  16. ASPIRIN. [Concomitant]
     Active Substance: ASPIRIN
     Indication: ROUTINE HEALTH MAINTENANCE
     Dosage: LOW DOSE, FOR YEARS
  17. ESTER-C [Concomitant]
     Active Substance: CALCIUM\VITAMINS
     Dosage: UNK
  18. ZOCOR [Suspect]
     Active Substance: SIMVASTATIN
     Dosage: 1 TABLET (STRENGTH: 20 MG), DAILY
     Route: 048
  19. RAPAMUNE [Suspect]
     Active Substance: SIROLIMUS
     Dosage: INCREASED TO 1 MG PER DAY
     Route: 048
     Dates: start: 2015, end: 201503
  20. CRESTOR [Suspect]
     Active Substance: ROSUVASTATIN CALCIUM
     Indication: BLOOD CHOLESTEROL INCREASED
     Dosage: 5 MG, UNK
     Dates: start: 201503, end: 20160526
  21. PRINIVIL [Concomitant]
     Active Substance: LISINOPRIL
     Dosage: 15 MG, UNK
  22. PRINIVIL [Concomitant]
     Active Substance: LISINOPRIL
     Dosage: 20 MG, QD, FOR YEARS
     Route: 048
  23. ERGOCALCIFEROL. [Concomitant]
     Active Substance: ERGOCALCIFEROL
     Dosage: UNK
  24. TOBRADEX [Concomitant]
     Active Substance: DEXAMETHASONE\TOBRAMYCIN
     Dosage: FORMULATION: OPHTHALMIC SUSPENSION, PLACE INTO BOTH EYES EVERY OTHER DAY
     Route: 047

REACTIONS (16)
  - Conjunctivitis [Recovered/Resolved]
  - Anal incontinence [Not Recovered/Not Resolved]
  - Product use issue [Unknown]
  - Malaise [Not Recovered/Not Resolved]
  - Diarrhoea [Not Recovered/Not Resolved]
  - Upper respiratory tract infection [Recovered/Resolved]
  - Headache [Recovered/Resolved]
  - Diarrhoea [Unknown]
  - Diarrhoea [Recovered/Resolved]
  - Gingivitis [Not Recovered/Not Resolved]
  - Asthenia [Unknown]
  - Pulmonary function test abnormal [Unknown]
  - Gastrooesophageal reflux disease [Unknown]
  - Drug ineffective [Unknown]
  - Aphthous ulcer [Not Recovered/Not Resolved]
  - Abdominal pain [Recovered/Resolved]

NARRATIVE: CASE EVENT DATE: 201503
